FAERS Safety Report 4797436-6 (Version None)
Quarter: 2005Q4

REPORT INFORMATION
  Report Type: 
  Country: None (occurrence: None)
  Receive Date: 20051006
  Receipt Date: 20051006
  Transmission Date: 20060501
  Serious: No
  Sender: FDA-Public Use
  Company Number: None

PATIENT
  Age: 79 Year
  Sex: Female
  Weight: 53.5244 kg

DRUGS (2)
  1. PROPAFENONE SUSTAINED-RELEASE [Suspect]
     Indication: ATRIAL FIBRILLATION
     Dosage: 225MG/BID/ORAL
     Route: 048
     Dates: start: 20050810
  2. PROPAFENONE SUSTAINED-RELEASE [Suspect]
     Indication: ATRIAL FIBRILLATION
     Dosage: 225MG/BID/ORAL
     Route: 048
     Dates: start: 20050913

REACTIONS (6)
  - ATRIAL FIBRILLATION [None]
  - BRADYCARDIA [None]
  - DIZZINESS [None]
  - FATIGUE [None]
  - INTERNATIONAL NORMALISED RATIO INCREASED [None]
  - POST PROCEDURAL COMPLICATION [None]
